FAERS Safety Report 7950994-2 (Version None)
Quarter: 2011Q4

REPORT INFORMATION
  Report Type: 
  Country: None (occurrence: None)
  Receive Date: 20111201
  Receipt Date: 20111128
  Transmission Date: 20120403
  Serious: No
  Sender: FDA-Public Use
  Company Number: US-BIOGENIDEC-2011BI044988

PATIENT
  Sex: Female

DRUGS (4)
  1. AVONEX [Concomitant]
     Route: 030
     Dates: start: 20100815
  2. AVONEX [Concomitant]
     Indication: MULTIPLE SCLEROSIS
     Route: 030
     Dates: end: 20071129
  3. TYSABRI [Suspect]
     Indication: MULTIPLE SCLEROSIS
     Route: 042
     Dates: start: 20080814, end: 20081204
  4. TYSABRI [Suspect]
     Route: 042
     Dates: start: 20110614, end: 20110712

REACTIONS (1)
  - COORDINATION ABNORMAL [None]
